FAERS Safety Report 5767557-X (Version None)
Quarter: 2008Q2

REPORT INFORMATION
  Report Type: 
  Country: None (occurrence: None)
  Receive Date: 20080611
  Receipt Date: 20080611
  Transmission Date: 20081010
  Serious: Yes (Hospitalization)
  Sender: FDA-Public Use
  Company Number: None

PATIENT
  Age: 75 Year
  Sex: Female
  Weight: 87.9978 kg

DRUGS (1)
  1. RITUXIMAB [Suspect]
     Indication: RHEUMATOID ARTHRITIS
     Dosage: 1000MG Q6MO  I.V
     Route: 042
     Dates: start: 20080401

REACTIONS (3)
  - ATRIAL FIBRILLATION [None]
  - BRONCHITIS [None]
  - CONDITION AGGRAVATED [None]
